FAERS Safety Report 6089454-5 (Version None)
Quarter: 2009Q1

REPORT INFORMATION
  Report Type: 
  Country: None (occurrence: None)
  Receive Date: 20090219
  Receipt Date: 20090203
  Transmission Date: 20090719
  Serious: Yes (Hospitalization)
  Sender: FDA-Public Use
  Company Number: 8034759

PATIENT
  Age: 18 Month
  Sex: Male
  Weight: 13.5 kg

DRUGS (1)
  1. XOZAL [Suspect]
     Indication: EAR INFECTION
     Dosage: 2.5 ML ONCE PO
     Route: 048
     Dates: start: 20080715, end: 20080715

REACTIONS (2)
  - DRUG DISPENSING ERROR [None]
  - INCORRECT DOSE ADMINISTERED [None]
